FAERS Safety Report 16774043 (Version 2)
Quarter: 2019Q3

REPORT INFORMATION
  Report Type: Spontaneous
  Country: GB (occurrence: GB)
  Receive Date: 20190905
  Receipt Date: 20190913
  Transmission Date: 20191005
  Serious: Yes (Other)
  Sender: FDA-Public Use
  Company Number: GB-AUROBINDO-AUR-APL-2019-056786

PATIENT
  Age: 48 Year
  Sex: Female

DRUGS (1)
  1. FLUCONAZOLE HARD CAPSULES [Suspect]
     Active Substance: FLUCONAZOLE
     Indication: CANDIDA INFECTION
     Dosage: UNK, INTERMITTENT
     Route: 048

REACTIONS (4)
  - Type IV hypersensitivity reaction [Unknown]
  - Fixed eruption [Unknown]
  - Dermatosis [Unknown]
  - Self-medication [Unknown]
